FAERS Safety Report 20783938 (Version 2)
Quarter: 2022Q2

REPORT INFORMATION
  Report Type: Spontaneous
  Country: BR (occurrence: BR)
  Receive Date: 20220504
  Receipt Date: 20220509
  Transmission Date: 20220720
  Serious: Yes (Hospitalization, Other)
  Sender: FDA-Public Use
  Company Number: BR-TAKEDA-2022TUS027437

PATIENT
  Sex: Female
  Weight: 70 kg

DRUGS (6)
  1. DEXILANT [Suspect]
     Active Substance: DEXLANSOPRAZOLE
     Indication: Dyspepsia
     Dosage: UNK UNK, BID
     Route: 065
  2. DEXILANT [Suspect]
     Active Substance: DEXLANSOPRAZOLE
     Dosage: UNK UNK, TID
     Route: 065
  3. DEXILANT [Suspect]
     Active Substance: DEXLANSOPRAZOLE
     Dosage: UNK
     Route: 048
  4. DOMPERIDONE [Concomitant]
     Active Substance: DOMPERIDONE
     Indication: Dyspepsia
     Dosage: UNK
     Route: 065
  5. MYLANTA PLUS [Concomitant]
     Active Substance: ALUMINUM HYDROXIDE\DIMETHICONE\MAGNESIUM HYDROXIDE
     Indication: Dyspepsia
     Dosage: UNK
     Route: 065
  6. PURAN [Concomitant]
     Active Substance: LEVOTHYROXINE SODIUM
     Indication: Hypothyroidism
     Dosage: UNK UNK, QD
     Route: 065

REACTIONS (11)
  - Hiatus hernia [Recovered/Resolved]
  - Off label use [Unknown]
  - Feeding disorder [Unknown]
  - Emotional disorder [Unknown]
  - Irritability [Unknown]
  - Anaesthetic complication [Unknown]
  - Oesophageal discomfort [Unknown]
  - Malaise [Unknown]
  - Discomfort [Unknown]
  - Dyspepsia [Unknown]
  - Nausea [Recovered/Resolved]
